FAERS Safety Report 7118036-9 (Version None)
Quarter: 2010Q4

REPORT INFORMATION
  Report Type: 
  Country: None (occurrence: None)
  Receive Date: 20101123
  Receipt Date: 20101116
  Transmission Date: 20110411
  Serious: Yes (Life-Threatening, Hospitalization)
  Sender: FDA-Public Use
  Company Number: FR-ELI_LILLY_AND_COMPANY-FR201011004135

PATIENT
  Sex: Male

DRUGS (6)
  1. UMULINE 30% REGULAR, 70% NPH [Suspect]
     Dosage: 40 IU, 2/D
     Route: 058
     Dates: end: 20100730
  2. TAHOR [Concomitant]
     Dosage: 10 MG, UNKNOWN
  3. PERINDOPRIL [Concomitant]
     Dosage: 4 MG, UNKNOWN
  4. BISOPROLOL FUMARATE [Concomitant]
     Dosage: 10 MG, UNKNOWN
  5. ZANIDIP [Concomitant]
     Dosage: 10 MG, UNKNOWN
  6. XATRAL [Concomitant]
     Dosage: UNK, UNKNOWN

REACTIONS (6)
  - AGITATION [None]
  - CONFUSIONAL STATE [None]
  - DISORIENTATION [None]
  - HYPERHIDROSIS [None]
  - HYPOGLYCAEMIA [None]
  - HYPOTHERMIA [None]
